FAERS Safety Report 25198119 (Version 2)
Quarter: 2025Q2

REPORT INFORMATION
  Report Type: Spontaneous
  Country: AU (occurrence: AU)
  Receive Date: 20250415
  Receipt Date: 20250512
  Transmission Date: 20250717
  Serious: Yes (Hospitalization)
  Sender: CSL BEHRING
  Company Number: AU-BEH-2025201712

PATIENT
  Age: 62 Year
  Sex: Female
  Weight: 85 kg

DRUGS (5)
  1. HUMAN IMMUNOGLOBULIN G [Suspect]
     Active Substance: HUMAN IMMUNOGLOBULIN G
     Indication: Blood immunoglobulin G decreased
     Dosage: UNK UNK, QMT
     Route: 042
     Dates: start: 20250408, end: 20250408
  2. HUMAN IMMUNOGLOBULIN G [Suspect]
     Active Substance: HUMAN IMMUNOGLOBULIN G
     Indication: Pneumonia
     Dosage: UNK UNK, QMT
     Route: 042
     Dates: start: 20250408, end: 20250408
  3. HUMAN IMMUNOGLOBULIN G [Suspect]
     Active Substance: HUMAN IMMUNOGLOBULIN G
     Indication: Plasma cell myeloma
  4. THYROXINE [Concomitant]
     Active Substance: LEVOTHYROXINE
     Dosage: 100 MG, QOD ALTERNATE DAYS
  5. THYROXINE [Concomitant]
     Active Substance: LEVOTHYROXINE
     Dosage: 75 MG, QOD ALTERNATE DAYS

REACTIONS (3)
  - Chest discomfort [Not Recovered/Not Resolved]
  - Neck pain [Recovering/Resolving]
  - Dyspnoea [Unknown]

NARRATIVE: CASE EVENT DATE: 20250408
